FAERS Safety Report 18577763 (Version 1)
Quarter: 2020Q4

REPORT INFORMATION
  Report Type: Spontaneous
  Country: IT (occurrence: IT)
  Receive Date: 20201204
  Receipt Date: 20201204
  Transmission Date: 20210114
  Serious: Yes (Other)
  Sender: FDA-Public Use
  Company Number: IT-SUN PHARMACEUTICAL INDUSTRIES LTD-2020RR-269566

PATIENT
  Age: 53 Year
  Sex: Male

DRUGS (4)
  1. CITALOPRAM [Suspect]
     Active Substance: CITALOPRAM HYDROBROMIDE
     Indication: MENTAL DISORDER
     Dosage: 1 DOSAGE FORM, IN TOTAL
     Route: 048
     Dates: start: 20180719, end: 20180719
  2. XANAX [Suspect]
     Active Substance: ALPRAZOLAM
     Indication: MENTAL DISORDER
     Dosage: 1 DOSAGE FORM, IN TOTAL
     Route: 048
     Dates: start: 20180719, end: 20180719
  3. TAVOR (LORAZEPAM) [Suspect]
     Active Substance: LORAZEPAM
     Indication: MENTAL DISORDER
     Dosage: 1 DOSAGE FORM, IN TOTAL
     Route: 048
     Dates: start: 20180719, end: 20180719
  4. GABAPENTIN. [Suspect]
     Active Substance: GABAPENTIN
     Indication: MENTAL DISORDER
     Dosage: 1 DOSAGE FORM, IN TOTAL
     Route: 048
     Dates: start: 20180719, end: 20180719

REACTIONS (5)
  - Balance disorder [Recovering/Resolving]
  - Muscular weakness [Recovering/Resolving]
  - Drug abuse [Recovering/Resolving]
  - Fall [Recovering/Resolving]
  - Asthenia [Recovering/Resolving]

NARRATIVE: CASE EVENT DATE: 20180719
